FAERS Safety Report 22594154 (Version 1)
Quarter: 2023Q2

REPORT INFORMATION
  Report Type: Spontaneous
  Country: US (occurrence: None)
  Receive Date: 20230612
  Receipt Date: 20230612
  Transmission Date: 20230721
  Serious: No
  Sender: FDA-Public Use
  Company Number: None

PATIENT
  Age: 47 Year
  Sex: Female
  Weight: 60.75 kg

DRUGS (1)
  1. DULOXETINE [Suspect]
     Active Substance: DULOXETINE
     Dates: start: 20230301, end: 20230302

REACTIONS (9)
  - Nausea [None]
  - Hyperhidrosis [None]
  - Night sweats [None]
  - Pruritus [None]
  - Chest discomfort [None]
  - Fatigue [None]
  - Swelling face [None]
  - Sticky skin [None]
  - Hyperhidrosis [None]

NARRATIVE: CASE EVENT DATE: 20230301
